FAERS Safety Report 11991678 (Version 1)
Quarter: 2016Q1

REPORT INFORMATION
  Report Type: Spontaneous
  Country: US (occurrence: US)
  Receive Date: 20160203
  Receipt Date: 20160203
  Transmission Date: 20160526
  Serious: No
  Sender: FDA-Public Use
  Company Number: US-JNJFOC-20151224018

PATIENT
  Sex: Female

DRUGS (2)
  1. PEPCID AC [Suspect]
     Active Substance: FAMOTIDINE
     Indication: ANTACID THERAPY
     Dosage: 1 TABLET, ONCE
     Route: 048
     Dates: start: 20151228
  2. PRILOSEC [Concomitant]
     Active Substance: OMEPRAZOLE MAGNESIUM
     Indication: ANTACID THERAPY
     Route: 065

REACTIONS (4)
  - Headache [Not Recovered/Not Resolved]
  - Contraindicated drug administered [Unknown]
  - Product use issue [Not Recovered/Not Resolved]
  - Off label use [Not Recovered/Not Resolved]

NARRATIVE: CASE EVENT DATE: 20151228
